FAERS Safety Report 10155666 (Version 3)
Quarter: 2014Q2

REPORT INFORMATION
  Report Type: Report from Study
  Country: US (occurrence: US)
  Receive Date: 20140506
  Receipt Date: 20140602
  Transmission Date: 20141212
  Serious: No
  Sender: FDA-Public Use
  Company Number: US-ALEXION-A201401627

PATIENT
  Sex: 0

DRUGS (2)
  1. SOLIRIS [Suspect]
     Indication: THROMBOTIC MICROANGIOPATHY
     Dosage: 1200 MG, Q2W
     Route: 042
     Dates: start: 20140208
  2. SOLIRIS [Suspect]
     Indication: OFF LABEL USE

REACTIONS (2)
  - Malaise [Not Recovered/Not Resolved]
  - Off label use [Unknown]
